FAERS Safety Report 8906696 (Version 1)
Quarter: 2012Q4

REPORT INFORMATION
  Report Type: 
  Country: US (occurrence: US)
  Receive Date: 20121113
  Receipt Date: 20121113
  Transmission Date: 20130627
  Serious: No
  Sender: FDA-Public Use
  Company Number: US-AMGEN-USASP2012011098

PATIENT
  Sex: Male

DRUGS (5)
  1. ENBREL [Suspect]
     Indication: PRODUCT USED FOR UNKNOWN INDICATION
     Dosage: 50 mg, qwk
     Route: 058
  2. LIPITOR [Concomitant]
     Dosage: 10 mg, UNK
  3. TOPROL [Concomitant]
     Dosage: 100 mg, UNK
  4. PLAVIX [Concomitant]
     Dosage: 75 mg, UNK
  5. VITAMIN D /00107901/ [Concomitant]

REACTIONS (2)
  - Therapeutic response decreased [Unknown]
  - Rash [Unknown]
